FAERS Safety Report 10033071 (Version 6)
Quarter: 2014Q2

REPORT INFORMATION
  Report Type: Spontaneous
  Country: JP (occurrence: JP)
  Receive Date: 20140324
  Receipt Date: 20140523
  Transmission Date: 20141212
  Serious: Yes (Hospitalization)
  Sender: FDA-Public Use
  Company Number: JP-LUNDBECK-DKLU1094373

PATIENT
  Age: 9 Month
  Sex: Male

DRUGS (6)
  1. VIGABATRIN (FOR ORAL SOLUTION) [Suspect]
     Indication: INFANTILE SPASMS
     Route: 048
     Dates: start: 20130825, end: 20131118
  2. VIGABATRIN (FOR ORAL SOLUTION) [Suspect]
     Route: 048
     Dates: start: 20131119
  3. MYSTAN [Concomitant]
     Indication: PRODUCT USED FOR UNKNOWN INDICATION
     Dates: start: 20130803
  4. DEPAKENE [Concomitant]
     Indication: PRODUCT USED FOR UNKNOWN INDICATION
     Dates: start: 20130810
  5. E-KEPPRA [Concomitant]
     Indication: PRODUCT USED FOR UNKNOWN INDICATION
     Dates: start: 20130626
  6. THYRADIN-S [Concomitant]
     Indication: PRODUCT USED FOR UNKNOWN INDICATION
     Dates: start: 20130928

REACTIONS (4)
  - Bronchiolitis [Recovered/Resolved]
  - Nuclear magnetic resonance imaging abnormal [Recovering/Resolving]
  - Pyrexia [Recovered/Resolved]
  - Pneumonia [Recovered/Resolved]
